FAERS Safety Report 8048270-5 (Version None)
Quarter: 2012Q1

REPORT INFORMATION
  Report Type: 
  Country: None (occurrence: None)
  Receive Date: 20120113
  Receipt Date: 20120113
  Transmission Date: 20120608
  Serious: Yes (Other)
  Sender: FDA-Public Use
  Company Number: None

PATIENT
  Sex: Female
  Weight: 50.34 kg

DRUGS (2)
  1. AZACITIDINE [Suspect]
     Indication: MYELODYSPLASTIC SYNDROME
     Dosage: 75 MG/M2 DAYS 1-5 SC
     Route: 058
     Dates: start: 20111031, end: 20111104
  2. PLERIXAFOR + G-CSF (5 UG/KG/D X5) [Suspect]
     Dosage: 440 UG/KG/D DAYS 1-5 SC
     Route: 058
     Dates: start: 20111205, end: 20111209

REACTIONS (1)
  - THROMBOCYTOSIS [None]
